FAERS Safety Report 9214811 (Version 3)
Quarter: 2013Q3

REPORT INFORMATION
  Report Type: Report from Study
  Country: US (occurrence: US)
  Receive Date: 20130405
  Receipt Date: 20130719
  Transmission Date: 20140515
  Serious: Yes (Other)
  Sender: FDA-Public Use
  Company Number: US-ABBOTT-13P-163-1070797-00

PATIENT
  Sex: Female

DRUGS (2)
  1. CREON [Suspect]
     Indication: PANCREATIC INSUFFICIENCY
  2. UNKNOWN MEDICATION [Concomitant]
     Indication: RESTLESS LEGS SYNDROME

REACTIONS (5)
  - Pancreaticoduodenectomy [Unknown]
  - Drug ineffective [Unknown]
  - Pain [Unknown]
  - Malaise [Unknown]
  - Malaise [Unknown]
